FAERS Safety Report 10155316 (Version 1)
Quarter: 2014Q2

REPORT INFORMATION
  Report Type: Spontaneous
  Country: US (occurrence: US)
  Receive Date: 20140506
  Receipt Date: 20140506
  Transmission Date: 20141212
  Serious: Yes (Other)
  Sender: FDA-Public Use
  Company Number: US-BAYER-2014-063611

PATIENT
  Age: 67 Year
  Sex: Male
  Weight: 79 kg

DRUGS (2)
  1. BACTINE PAIN RELIEVING [Suspect]
     Dosage: SPRAYED TWO SPRAYS
     Route: 048
     Dates: start: 20140428
  2. CELEBREX [Concomitant]

REACTIONS (5)
  - Pharyngeal oedema [Recovered/Resolved]
  - Dyspnoea [Recovered/Resolved]
  - Pharyngeal hypoaesthesia [Recovered/Resolved]
  - Incorrect route of drug administration [None]
  - Expired product administered [None]
